FAERS Safety Report 8259611-8 (Version None)
Quarter: 2012Q2

REPORT INFORMATION
  Report Type: 
  Country: None (occurrence: None)
  Receive Date: 20120404
  Receipt Date: 20120327
  Transmission Date: 20120825
  Serious: Yes (Hospitalization)
  Sender: FDA-Public Use
  Company Number: PHHY2012FR021646

PATIENT
  Sex: Male
  Weight: 59 kg

DRUGS (6)
  1. ACETAMINOPHEN [Concomitant]
  2. FENOFIBRATE [Concomitant]
  3. ZOLPIDEM TARTRATE [Concomitant]
  4. LORAZEPAM [Concomitant]
  5. CARBOSYMAG [Concomitant]
  6. ZOLEDRONOC ACID [Suspect]
     Indication: OSTEOPOROSIS
     Dosage: 5MG ONCE/SINGLE
     Route: 042
     Dates: start: 20120221

REACTIONS (14)
  - RED BLOOD CELL SEDIMENTATION RATE INCREASED [None]
  - PAIN IN EXTREMITY [None]
  - AORTIC CALCIFICATION [None]
  - PYREXIA [None]
  - BETA 2 GLOBULIN [None]
  - ANXIETY [None]
  - MITRAL VALVE INCOMPETENCE [None]
  - C-REACTIVE PROTEIN INCREASED [None]
  - CARDIAC MURMUR [None]
  - CHOLELITHIASIS [None]
  - INFLAMMATION [None]
  - INFLUENZA LIKE ILLNESS [None]
  - BONE PAIN [None]
  - INTERSTITIAL LUNG DISEASE [None]
